FAERS Safety Report 9089003 (Version 2)
Quarter: 2013Q1

REPORT INFORMATION
  Report Type: Spontaneous
  Country: JP (occurrence: JP)
  Receive Date: 20130107
  Receipt Date: 20130107
  Transmission Date: 20140127
  Serious: Yes (Hospitalization)
  Sender: FDA-Public Use
  Company Number: JP-ABBOTT-13P-087-1031806-00

PATIENT
  Sex: 0

DRUGS (3)
  1. CLARITHROMYCIN [Suspect]
     Indication: HELICOBACTER INFECTION
     Route: 048
  2. SAWACILLIN [Suspect]
     Indication: HELICOBACTER INFECTION
     Route: 048
  3. RABEPRAZOLA SODIUM [Concomitant]
     Indication: HELICOBACTER INFECTION
     Route: 048

REACTIONS (1)
  - Erythema [Not Recovered/Not Resolved]
